FAERS Safety Report 17483849 (Version 1)
Quarter: 2020Q1

REPORT INFORMATION
  Report Type: Spontaneous
  Country: US (occurrence: US)
  Receive Date: 20200301
  Receipt Date: 20200301
  Transmission Date: 20200409
  Serious: Yes (Life-Threatening, Hospitalization)
  Sender: FDA-Public Use
  Company Number: None

PATIENT
  Age: 39 Year
  Sex: Male
  Weight: 129.6 kg

DRUGS (2)
  1. LEVOTHYROXIN [Suspect]
     Active Substance: LEVOTHYROXINE
     Indication: HYPOTHYROIDISM
     Dosage: ?          QUANTITY:1 TABLET(S);?
     Route: 048
     Dates: start: 20200213, end: 20200214
  2. LEVOTHYROXIN [Suspect]
     Active Substance: LEVOTHYROXINE
     Indication: HYPOTHYROIDISM
     Dosage: ?          QUANTITY:1 TABLET(S);?
     Route: 048
     Dates: start: 20200210, end: 20200212

REACTIONS (9)
  - Gingival discolouration [None]
  - Metal poisoning [None]
  - Alopecia [None]
  - Vomiting [None]
  - Bronchitis chronic [None]
  - Constipation [None]
  - Product contamination physical [None]
  - Counterfeit product administered [None]
  - Chromaturia [None]

NARRATIVE: CASE EVENT DATE: 20200217
